FAERS Safety Report 9163275 (Version 2)
Quarter: 2013Q2

REPORT INFORMATION
  Report Type: Spontaneous
  Country: JP (occurrence: JP)
  Receive Date: 20130314
  Receipt Date: 20130419
  Transmission Date: 20140414
  Serious: Yes (Other)
  Sender: FDA-Public Use
  Company Number: JP-GLAXOSMITHKLINE-B0873864A

PATIENT
  Age: 79 Year
  Sex: Female

DRUGS (3)
  1. SERETIDE (50MCG/250MCG) [Suspect]
     Indication: COUGH
     Dosage: 250MCG TWICE PER DAY
     Route: 055
     Dates: start: 20120713, end: 20130304
  2. JZOLOFT [Concomitant]
     Indication: DEPRESSION
     Dosage: 25MG PER DAY
     Route: 048
     Dates: start: 20120713
  3. METHISTA [Concomitant]
     Indication: INTERSTITIAL LUNG DISEASE
     Dosage: 500MG THREE TIMES PER DAY
     Route: 048
     Dates: start: 20120713

REACTIONS (3)
  - Atypical mycobacterial infection [Recovering/Resolving]
  - Granuloma [Unknown]
  - Chest X-ray abnormal [Recovering/Resolving]
